FAERS Safety Report 21818952 (Version 1)
Quarter: 2023Q1

REPORT INFORMATION
  Report Type: Report from Study
  Country: US (occurrence: US)
  Receive Date: 20230104
  Receipt Date: 20230104
  Transmission Date: 20230417
  Serious: Yes (Other)
  Sender: FDA-Public Use
  Company Number: US-MYLANLABS-2010007657

PATIENT
  Sex: Female
  Weight: 68.2 kg

DRUGS (17)
  1. LYRICA [Suspect]
     Active Substance: PREGABALIN
     Indication: Peripheral nerve injury
     Dosage: 300 MILLIGRAM, TID, 3X/DAY REGIMEN DOSE UNIT: MILLIGRAM
     Route: 048
  2. LYRICA [Suspect]
     Active Substance: PREGABALIN
     Indication: Neuropathy peripheral
     Dosage: 300 MILLIGRAM, BID, 2X/DAY REGIMEN DOSE UNIT: MILLIGRAM
     Route: 048
  3. LYRICA [Suspect]
     Active Substance: PREGABALIN
     Indication: Fibromyalgia
     Dosage: UNK
     Route: 048
     Dates: start: 2005
  4. LYRICA [Suspect]
     Active Substance: PREGABALIN
     Indication: Neuralgia
     Dosage: 900 MILLIGRAM, QD, DAILY
     Route: 048
     Dates: start: 2008
  5. LYRICA [Suspect]
     Active Substance: PREGABALIN
     Indication: Brachial plexopathy
  6. LYRICA [Suspect]
     Active Substance: PREGABALIN
     Indication: Pain in extremity
  7. GABAPENTIN [Suspect]
     Active Substance: GABAPENTIN
     Indication: Product used for unknown indication
     Dosage: UNK
     Route: 065
  8. PROPRANOLOL HYDROCHLORIDE [Concomitant]
     Active Substance: PROPRANOLOL HYDROCHLORIDE
     Indication: Migraine
     Dosage: 40 MILLIGRAM, PRN, ONE TO TWO TIMES A DAY AS NEEDED
     Route: 065
  9. PROPRANOLOL HYDROCHLORIDE [Concomitant]
     Active Substance: PROPRANOLOL HYDROCHLORIDE
     Indication: Prophylaxis
     Dosage: 40 MILLIGRAM, BID, REGIMEN DOSE UNIT: MILLIGRAM
     Route: 065
  10. PROPRANOLOL HYDROCHLORIDE [Concomitant]
     Active Substance: PROPRANOLOL HYDROCHLORIDE
     Indication: Migraine prophylaxis
  11. LEVOTHYROXINE [Concomitant]
     Active Substance: LEVOTHYROXINE
     Indication: Hypothyroidism
     Dosage: 0.5 MILLIGRAM, SHE TAKES 0.5 MILLIGRAM
     Route: 065
  12. PROZAC [Concomitant]
     Active Substance: FLUOXETINE HYDROCHLORIDE
     Indication: Product used for unknown indication
     Dosage: UNK
     Route: 065
  13. IBUPROFEN [Concomitant]
     Active Substance: IBUPROFEN
     Indication: Antiinflammatory therapy
     Dosage: 800 MILLIGRAM, BID, 2X/DAY REGIMEN DOSE UNIT: MILLIGRAM
     Route: 065
  14. CYTOMEL [Concomitant]
     Active Substance: LIOTHYRONINE SODIUM
     Indication: Hypothyroidism
     Dosage: TAKES 0.375 (WITHOUT UNITS) AND FURTHER TAKES RIGHT NOW 0.025 CAPSULE THEN
     Route: 065
     Dates: start: 2005
  15. PERCOCET [Concomitant]
     Active Substance: ACETAMINOPHEN\OXYCODONE HYDROCHLORIDE
     Indication: Product used for unknown indication
     Dosage: UNK
     Route: 065
  16. ELAVIL [Concomitant]
     Active Substance: AMITRIPTYLINE HYDROCHLORIDE
     Indication: Antidepressant therapy
     Dosage: 100 MILLIGRAM, QD, 1X/DAY REGIMEN DOSE UNIT: MILLIGRAM
     Route: 048
     Dates: start: 1994
  17. IMITREX [Concomitant]
     Active Substance: SUMATRIPTAN SUCCINATE
     Indication: Migraine
     Dosage: UNK
     Route: 065

REACTIONS (18)
  - Overdose [Unknown]
  - Peripheral nerve injury [Unknown]
  - Extremity necrosis [Not Recovered/Not Resolved]
  - Gait disturbance [Unknown]
  - Limb injury [Not Recovered/Not Resolved]
  - Fall [Unknown]
  - Nerve compression [Unknown]
  - Ligament rupture [Unknown]
  - Joint injury [Unknown]
  - Tarsal tunnel syndrome [Unknown]
  - Ligament sprain [Unknown]
  - Therapeutic response unexpected [Unknown]
  - Pre-existing condition improved [Unknown]
  - Pain [Not Recovered/Not Resolved]
  - Condition aggravated [Not Recovered/Not Resolved]
  - Muscle spasms [Not Recovered/Not Resolved]
  - Nerve injury [Unknown]
  - Drug hypersensitivity [Unknown]

NARRATIVE: CASE EVENT DATE: 20090101
